FAERS Safety Report 6070522-9 (Version None)
Quarter: 2009Q1

REPORT INFORMATION
  Report Type: 
  Country: None (occurrence: None)
  Receive Date: 20090209
  Receipt Date: 20090129
  Transmission Date: 20090719
  Serious: Yes (Hospitalization)
  Sender: FDA-Public Use
  Company Number: HU-JNJFOC-20090107337

PATIENT
  Age: 13 Year
  Sex: Female

DRUGS (5)
  1. REMICADE [Suspect]
     Dosage: 6TH INFUSION
     Route: 042
  2. REMICADE [Suspect]
     Indication: CROHN'S DISEASE
     Dosage: 1 MG/MINUTE
     Route: 042
  3. MEDROL [Concomitant]
     Indication: CROHN'S DISEASE
  4. SALOFALK [Concomitant]
     Indication: CROHN'S DISEASE
  5. VENTER [Concomitant]
     Indication: CROHN'S DISEASE

REACTIONS (6)
  - CHEST PAIN [None]
  - COUGH [None]
  - CYANOSIS [None]
  - DRUG SPECIFIC ANTIBODY PRESENT [None]
  - FLUSHING [None]
  - INFUSION RELATED REACTION [None]
